FAERS Safety Report 10622789 (Version 2)
Quarter: 2016Q1

REPORT INFORMATION
  Report Type: Spontaneous
  Country: NL (occurrence: NL)
  Receive Date: 20141203
  Receipt Date: 20160205
  Transmission Date: 20160525
  Serious: Yes (Death, Other)
  Sender: FDA-Public Use
  Company Number: NL-CELGENE-NLD-2014120005

PATIENT

DRUGS (6)
  1. PREDNISONE. [Suspect]
     Active Substance: PREDNISONE
     Indication: PLASMA CELL MYELOMA
     Route: 065
     Dates: start: 200901
  2. THALIDOMIDE [Suspect]
     Active Substance: THALIDOMIDE
     Indication: PLASMA CELL MYELOMA
     Route: 048
     Dates: start: 200901
  3. MELPHALAN [Suspect]
     Active Substance: MELPHALAN
     Indication: PLASMA CELL MYELOMA
     Route: 065
     Dates: start: 200901
  4. REVLIMID [Suspect]
     Active Substance: LENALIDOMIDE
     Dosage: .18 MILLIGRAM/KILOGRAM
     Route: 048
  5. REVLIMID [Suspect]
     Active Substance: LENALIDOMIDE
     Indication: PLASMA CELL MYELOMA
     Route: 048
     Dates: start: 200901
  6. THALIDOMIDE [Suspect]
     Active Substance: THALIDOMIDE
     Route: 048

REACTIONS (20)
  - Plasma cell myeloma [Unknown]
  - Second primary malignancy [Unknown]
  - Skin cancer [Unknown]
  - Neutropenia [Unknown]
  - Pulmonary hypertension [Unknown]
  - Febrile neutropenia [Unknown]
  - Deep vein thrombosis [Unknown]
  - Renal failure [Unknown]
  - Neuropathy peripheral [Unknown]
  - Neoplasm [Unknown]
  - Myelodysplastic syndrome [Unknown]
  - Death [Fatal]
  - Cardiac disorder [Unknown]
  - Pulmonary embolism [Unknown]
  - Thrombocytopenia [Unknown]
  - Infection [Unknown]
  - Dementia [Unknown]
  - Anaemia [Unknown]
  - Acute myeloid leukaemia [Unknown]
  - Hypersensitivity [Unknown]
